FAERS Safety Report 18320667 (Version 12)
Quarter: 2021Q3

REPORT INFORMATION
  Report Type: Spontaneous
  Country: US (occurrence: US)
  Receive Date: 20200928
  Receipt Date: 20210906
  Transmission Date: 20211014
  Serious: Yes (Other)
  Sender: FDA-Public Use
  Company Number: US-PFIZER INC-2020372619

PATIENT
  Age: 77 Year
  Sex: Female
  Weight: 100.68 kg

DRUGS (4)
  1. IBRANCE [Suspect]
     Active Substance: PALBOCICLIB
     Indication: BREAST CANCER
     Dosage: 125 MG
  2. IBRANCE [Suspect]
     Active Substance: PALBOCICLIB
     Indication: BONE CANCER METASTATIC
     Dosage: 125 MG
     Dates: start: 20200828
  3. IBRANCE [Suspect]
     Active Substance: PALBOCICLIB
     Dosage: 125 MG
     Dates: start: 20210315
  4. LEVOTHYROXIN [Concomitant]
     Active Substance: LEVOTHYROXINE
     Dosage: 125 MG

REACTIONS (15)
  - Ankle fracture [Unknown]
  - Diverticulitis [Unknown]
  - Hyperventilation [Unknown]
  - Platelet count decreased [Unknown]
  - Blood pressure increased [Unknown]
  - Insomnia [Unknown]
  - Distractibility [Unknown]
  - Immobile [Not Recovered/Not Resolved]
  - Illness [Unknown]
  - Pruritus [Unknown]
  - Musculoskeletal stiffness [Unknown]
  - Arthralgia [Unknown]
  - Blood count abnormal [Unknown]
  - Tension [Recovering/Resolving]
  - Anxiety [Unknown]

NARRATIVE: CASE EVENT DATE: 20180306
